FAERS Safety Report 5889773-9 (Version None)
Quarter: 2008Q3

REPORT INFORMATION
  Report Type: 
  Country: None (occurrence: None)
  Receive Date: 20080919
  Receipt Date: 20080918
  Transmission Date: 20090109
  Serious: Yes (Other)
  Sender: FDA-Public Use
  Company Number: US-RB-008189-07

PATIENT
  Age: 22 Year
  Sex: Female

DRUGS (2)
  1. SUBUTEX [Suspect]
     Route: 060
     Dates: start: 20071003, end: 20071127
  2. SUBOXONE [Suspect]
     Route: 060
     Dates: start: 20070918, end: 20071002

REACTIONS (2)
  - ABORTION SPONTANEOUS [None]
  - DRUG EXPOSURE DURING PREGNANCY [None]
